FAERS Safety Report 13006526 (Version 2)
Quarter: 2017Q1

REPORT INFORMATION
  Report Type: Spontaneous
  Country: US (occurrence: US)
  Receive Date: 20161207
  Receipt Date: 20170105
  Transmission Date: 20170428
  Serious: No
  Sender: FDA-Public Use
  Company Number: US-G+W LABS-GW2016US000197

PATIENT

DRUGS (1)
  1. CLOBETASOL PROPIONATE. [Suspect]
     Active Substance: CLOBETASOL PROPIONATE
     Indication: CELLULITIS
     Dosage: USE PARINGLY ONLY ONCE A DAY
     Route: 061

REACTIONS (1)
  - Off label use [Unknown]
